FAERS Safety Report 6686542-7 (Version None)
Quarter: 2010Q2

REPORT INFORMATION
  Report Type: 
  Country: None (occurrence: None)
  Receive Date: 20100419
  Receipt Date: 20100405
  Transmission Date: 20101027
  Serious: Yes (Hospitalization, Other)
  Sender: FDA-Public Use
  Company Number: US-ELI_LILLY_AND_COMPANY-US201001003750

PATIENT
  Age: 34 Year
  Sex: Male
  Weight: 106 kg

DRUGS (2)
  1. EFFIENT [Suspect]
     Indication: ACUTE MYOCARDIAL INFARCTION
     Dosage: LOADING DOSE
     Dates: start: 20100101
  2. EFFIENT [Suspect]
     Dosage: 10 MG, UNK

REACTIONS (3)
  - AUTOIMMUNE NEUTROPENIA [None]
  - DEEP VEIN THROMBOSIS [None]
  - THROMBOPHLEBITIS [None]
